FAERS Safety Report 7528854-0 (Version None)
Quarter: 2011Q2

REPORT INFORMATION
  Report Type: 
  Country: None (occurrence: None)
  Receive Date: 20110607
  Receipt Date: 20110114
  Transmission Date: 20111010
  Serious: No
  Sender: FDA-Public Use
  Company Number: US-ASTRAZENECA-2011SE04273

PATIENT
  Age: 89 Year
  Sex: Male

DRUGS (4)
  1. DRUG USED IN DIABETES [Concomitant]
     Dosage: UNKNOWN
  2. PRILOSEC OTC [Suspect]
     Indication: GASTROOESOPHAGEAL REFLUX DISEASE
     Dosage: 2 TABLET, 1/DAY, EVERY DAY FOR YEARS
     Route: 048
  3. ANTIHYPERTENSIVES [Concomitant]
     Dosage: UNKNOWN
  4. ANTIGLAUCOMA PREPARATIONS AND MIOTICS [Concomitant]
     Dosage: UNKNOWN

REACTIONS (3)
  - INCORRECT DRUG ADMINISTRATION DURATION [None]
  - RASH GENERALISED [None]
  - INCORRECT DOSE ADMINISTERED [None]
